FAERS Safety Report 8086005-0 (Version None)
Quarter: 2012Q1

REPORT INFORMATION
  Report Type: 
  Country: None (occurrence: None)
  Receive Date: 20120128
  Receipt Date: 20110414
  Transmission Date: 20120608
  Serious: No
  Sender: FDA-Public Use
  Company Number: US-ABBOTT-11P-163-0718920-00

PATIENT
  Sex: Female
  Weight: 77.18 kg

DRUGS (16)
  1. CYMBALTA [Concomitant]
     Indication: DEPRESSION
  2. OMEPRAZOLE [Concomitant]
     Indication: GASTROOESOPHAGEAL REFLUX DISEASE
  3. PERCOCET [Concomitant]
     Indication: PAIN
  4. VITAMIN B COMPLEX CAP [Concomitant]
     Indication: VITAMIN SUPPLEMENTATION
  5. METHOTREXATE [Concomitant]
     Indication: CROHN'S DISEASE
  6. EXCEDRIN [Concomitant]
     Indication: MIGRAINE
  7. HUMIRA [Suspect]
     Indication: CROHN'S DISEASE
     Dates: start: 20110326, end: 20110326
  8. DICYCLOMINE [Concomitant]
     Indication: GASTROINTESTINAL PAIN
  9. MULTI-VITAMIN [Concomitant]
     Indication: VITAMIN SUPPLEMENTATION
  10. HUMIRA [Suspect]
     Dates: start: 20110410, end: 20110410
  11. XANAX [Concomitant]
     Indication: ANXIETY
  12. TRAZODONE HCL [Concomitant]
     Indication: SLEEP DISORDER THERAPY
  13. FOLIC ACID [Concomitant]
     Indication: VITAMIN SUPPLEMENTATION
  14. BIOTEN [Concomitant]
     Indication: VITAMIN SUPPLEMENTATION
  15. CYMBALTA [Concomitant]
     Indication: ANXIETY
  16. FLEXERIL [Concomitant]
     Indication: MUSCLE SPASMS

REACTIONS (1)
  - HEADACHE [None]
